FAERS Safety Report 24666473 (Version 2)
Quarter: 2025Q2

REPORT INFORMATION
  Report Type: Spontaneous
  Country: US (occurrence: US)
  Receive Date: 20241126
  Receipt Date: 20250415
  Transmission Date: 20250717
  Serious: Yes (Hospitalization)
  Sender: SANOFI AVENTIS
  Company Number: US-SA-2024SA341244

PATIENT
  Sex: Male

DRUGS (21)
  1. KEVZARA [Suspect]
     Active Substance: SARILUMAB
     Indication: Rheumatoid arthritis
     Dosage: 200 MG, QOW
     Route: 058
  2. METHOCARBAMOL [Concomitant]
     Active Substance: METHOCARBAMOL
  3. OZEMPIC [Concomitant]
     Active Substance: SEMAGLUTIDE
  4. SPIRONOLACTONE [Concomitant]
     Active Substance: SPIRONOLACTONE
  5. CYANOCOBALAMIN [Concomitant]
     Active Substance: CYANOCOBALAMIN
  6. VITAMIN D NOS [Concomitant]
     Active Substance: CHOLECALCIFEROL\ERGOCALCIFEROL
  7. ATORVASTATIN [Concomitant]
     Active Substance: ATORVASTATIN
  8. FOLIC ACID [Concomitant]
     Active Substance: FOLIC ACID
  9. TAMSULOSIN HYDROCHLORIDE [Concomitant]
     Active Substance: TAMSULOSIN HYDROCHLORIDE
  10. FUROSEMIDE [Concomitant]
     Active Substance: FUROSEMIDE
  11. IBUPROFEN [Concomitant]
     Active Substance: IBUPROFEN
  12. LEVOTHYROXINE [Concomitant]
     Active Substance: LEVOTHYROXINE
  13. LOSARTAN POTASSIUM [Concomitant]
     Active Substance: LOSARTAN POTASSIUM
  14. PREDNISONE [Concomitant]
     Active Substance: PREDNISONE
  15. SENNA S [Concomitant]
     Active Substance: DOCUSATE SODIUM\SENNOSIDES
  16. METHYLPREDNISOLONE [Concomitant]
     Active Substance: METHYLPREDNISOLONE
  17. RESTASIS [Concomitant]
     Active Substance: CYCLOSPORINE
  18. ALBUTEROL [Concomitant]
     Active Substance: ALBUTEROL
  19. GABAPENTIN [Concomitant]
     Active Substance: GABAPENTIN
  20. ATORVASTATIN [Concomitant]
     Active Substance: ATORVASTATIN
  21. LORATADINE [Concomitant]
     Active Substance: LORATADINE

REACTIONS (11)
  - Influenza [Not Recovered/Not Resolved]
  - Muscle spasms [Unknown]
  - General physical health deterioration [Unknown]
  - Pulpitis dental [Unknown]
  - Yawning [Unknown]
  - Haemorrhage [Unknown]
  - Pain [Unknown]
  - Inflammation [Not Recovered/Not Resolved]
  - Injection site discolouration [Unknown]
  - Stomatitis [Unknown]
  - Drug ineffective [Unknown]
